FAERS Safety Report 9553008 (Version 1)
Quarter: 2013Q2

REPORT INFORMATION
  Report Type: Spontaneous
  Country: US (occurrence: None)
  Receive Date: 20130606
  Receipt Date: 20130606
  Transmission Date: 20140414
  Serious: Yes (Other)
  Sender: FDA-Public Use
  Company Number: 2013PROUSA02741

PATIENT
  Age: 73 Year
  Sex: Male

DRUGS (1)
  1. PROVENGE [Suspect]
     Indication: PROSTATE CANCER METASTATIC
     Route: 042
     Dates: start: 20130321, end: 20130321

REACTIONS (5)
  - Pallor [None]
  - Heart rate decreased [None]
  - Vital functions abnormal [None]
  - Dizziness [None]
  - Vomiting [None]
